FAERS Safety Report 4562560-X (Version None)
Quarter: 2005Q1

REPORT INFORMATION
  Report Type: 
  Country: None (occurrence: None)
  Receive Date: 20050127
  Receipt Date: 20030617
  Transmission Date: 20050727
  Serious: Yes (Life-Threatening, Hospitalization)
  Sender: FDA-Public Use
  Company Number: US-ROCHE-340384

PATIENT
  Age: 40 Year
  Sex: Male
  Weight: 90.3 kg

DRUGS (34)
  1. FUZEON [Suspect]
     Indication: DRUG USE FOR UNKNOWN INDICATION
     Route: 058
     Dates: start: 20030415
  2. FUZEON [Suspect]
     Route: 058
     Dates: start: 20030606
  3. FUZEON [Suspect]
     Route: 058
     Dates: end: 20030705
  4. FUZEON [Suspect]
     Dosage: STRENGTH REPORTED AS 90MG/ML.
     Route: 058
     Dates: start: 20030824
  5. FUZEON [Suspect]
     Dosage: ROUTE REPORTED AS: INJECTION.
     Route: 058
     Dates: start: 20050110
  6. KALETRA [Concomitant]
     Indication: HIV INFECTION
     Route: 048
     Dates: start: 20020808
  7. AGENERASE [Concomitant]
     Indication: HIV INFECTION
     Route: 048
     Dates: start: 20000614
  8. VIDEX EC [Concomitant]
     Indication: HIV INFECTION
     Route: 048
     Dates: start: 20011015, end: 20020327
  9. LASIX [Concomitant]
     Route: 048
     Dates: start: 20010521
  10. GLUCOTROL [Concomitant]
     Route: 048
     Dates: start: 20000614
  11. INVIRASE [Concomitant]
     Dates: start: 19960101, end: 19960401
  12. RETROVIR [Concomitant]
     Dates: start: 19960101, end: 20020327
  13. EPIVIR [Concomitant]
     Dates: start: 19960101, end: 20000805
  14. CRIXIVAN [Concomitant]
     Dates: start: 19960401, end: 19970428
  15. ZERIT [Concomitant]
     Dates: start: 19970428, end: 19980806
  16. VIRACEPT [Concomitant]
     Dates: start: 19970428, end: 19980806
  17. VIDEX [Concomitant]
     Dates: start: 19980806, end: 20030611
  18. NORVIR [Concomitant]
     Dates: start: 19980806
  19. FORTOVASE [Concomitant]
     Dates: start: 19980806, end: 19990125
  20. ZIAGEN [Concomitant]
     Dates: start: 19990125, end: 20000405
  21. SUSTIVA [Concomitant]
     Dosage: REGIMEN REPORTED AS: HS
     Dates: start: 19990125, end: 20000405
  22. PREVEON [Concomitant]
     Dates: start: 19990125, end: 20000405
  23. CELEBREX [Concomitant]
  24. FLEXERIL [Concomitant]
     Dosage: REGIMEN REPORTED AS: QHS.
  25. ZETIA [Concomitant]
  26. ATACAND [Concomitant]
  27. GLIPIZIDE [Concomitant]
  28. XANAX [Concomitant]
  29. RESTORIL [Concomitant]
     Dosage: REGIMEN REPORTED AS: QHS.
  30. PAXIL [Concomitant]
  31. PRAVACHOL [Concomitant]
  32. MARINOL [Concomitant]
  33. INSULIN [Concomitant]
     Route: 058
  34. HYDROCORTISON [Concomitant]
     Indication: ADRENAL GLAND INJURY
     Route: 048

REACTIONS (11)
  - BODY TEMPERATURE DECREASED [None]
  - CYST [None]
  - INJECTION SITE HAEMORRHAGE [None]
  - INJECTION SITE PAIN [None]
  - INJECTION SITE REACTION [None]
  - MEDICATION ERROR [None]
  - NODULE [None]
  - PRURITUS [None]
  - RENAL FAILURE ACUTE [None]
  - SCARLET FEVER [None]
  - VISUAL ACUITY REDUCED [None]
